FAERS Safety Report 21557027 (Version 1)
Quarter: 2022Q4

REPORT INFORMATION
  Report Type: Report from Study
  Country: US (occurrence: US)
  Receive Date: 20221104
  Receipt Date: 20221104
  Transmission Date: 20230113
  Serious: Yes (Hospitalization)
  Sender: FDA-Public Use
  Company Number: US-PFIZER INC-PV202200095051

PATIENT
  Age: 63 Year
  Sex: Male
  Weight: 64.8 kg

DRUGS (16)
  1. TALZENNA [Suspect]
     Active Substance: TALAZOPARIB TOSYLATE
     Dosage: 1 MG, 1X/DAY
     Route: 048
     Dates: start: 20221007, end: 20221021
  2. ACETAMINOPHEN [Concomitant]
     Active Substance: ACETAMINOPHEN
     Indication: Cancer pain
     Dosage: 1000 MG
     Dates: start: 20190723
  3. ELIQUIS [Concomitant]
     Active Substance: APIXABAN
     Indication: Embolism venous
     Dosage: 5 MG
     Dates: start: 20210701
  4. ASPIRIN [Concomitant]
     Active Substance: ASPIRIN
     Dosage: 81 MG
  5. CALCIUM\ERGOCALCIFEROL [Concomitant]
     Active Substance: CALCIUM\ERGOCALCIFEROL
     Dosage: 0.8 G 1 - 0.8 G
     Dates: start: 20210824
  6. FUROSEMIDE [Concomitant]
     Active Substance: FUROSEMIDE
     Indication: Oedema
     Dosage: 40 MG
     Dates: start: 20210701
  7. FUROSEMIDE [Concomitant]
     Active Substance: FUROSEMIDE
     Indication: Generalised oedema
  8. NOVOLOG [Concomitant]
     Active Substance: INSULIN ASPART
     Indication: Glucose tolerance impaired
     Dosage: 12 UNITS (FLEXPEN)
  9. INSULIN GLARGINE NOVONORDISK [Concomitant]
     Indication: Glucose tolerance impaired
     Dosage: 15 IU(15 UNITS)
  10. LEVOTHYROXINE SODIUM [Concomitant]
     Active Substance: LEVOTHYROXINE SODIUM
     Indication: Hypothyroidism
     Dosage: 200 UG (200 MCG)
     Dates: start: 20190716
  11. MORPHINE SULFATE [Concomitant]
     Active Substance: MORPHINE SULFATE
     Indication: Cancer pain
     Dosage: 15 MG
     Dates: start: 20210715
  12. PREGABALIN [Concomitant]
     Active Substance: PREGABALIN
     Dosage: 200 MG
     Dates: start: 20201217
  13. DOCUSATE SODIUM AND SENNA [Concomitant]
     Active Substance: DOCUSATE SODIUM\SENNOSIDES
     Indication: Constipation
     Dosage: 50 MG 8.6 - 50 MG
     Dates: start: 20190821
  14. SIMVASTATIN [Concomitant]
     Active Substance: SIMVASTATIN
     Indication: Hyperlipidaemia
     Dosage: 40 MG
     Dates: start: 20190711
  15. SPIRONOLACTONE [Concomitant]
     Active Substance: SPIRONOLACTONE
     Indication: Generalised oedema
     Dosage: 25 MG
     Dates: start: 20210824
  16. SPIRONOLACTONE [Concomitant]
     Active Substance: SPIRONOLACTONE
     Indication: Oedema

REACTIONS (1)
  - Sepsis [Recovered/Resolved]

NARRATIVE: CASE EVENT DATE: 20221021
